FAERS Safety Report 9152486 (Version 1)
Quarter: 2013Q1

REPORT INFORMATION
  Report Type: Spontaneous
  Country: US (occurrence: US)
  Receive Date: 20130308
  Receipt Date: 20130308
  Transmission Date: 20140127
  Serious: No
  Sender: FDA-Public Use
  Company Number: US-MUTUAL PHARMACEUTICAL COMPANY, INC.-ALLP20120025

PATIENT
  Sex: Male
  Weight: 95.34 kg

DRUGS (1)
  1. ALLOPURINOL [Suspect]
     Indication: GOUT
     Route: 065
     Dates: start: 2009, end: 2009

REACTIONS (3)
  - Back pain [Recovered/Resolved]
  - Headache [Recovered/Resolved]
  - Rash [Recovered/Resolved]
